FAERS Safety Report 6938753-0 (Version None)
Quarter: 2010Q3

REPORT INFORMATION
  Report Type: 
  Country: None (occurrence: None)
  Receive Date: 20100824
  Receipt Date: 20100813
  Transmission Date: 20110219
  Serious: Yes (Other)
  Sender: FDA-Public Use
  Company Number: GB-CVT-100289

PATIENT

DRUGS (7)
  1. RANEXA [Suspect]
     Indication: PRODUCT USED FOR UNKNOWN INDICATION
     Dosage: 375 MG, BID
     Route: 048
  2. NICORANDIL [Concomitant]
  3. AMLODIPINE [Concomitant]
  4. PLAVIX [Concomitant]
     Indication: MYOCARDIAL ISCHAEMIA
  5. ISOSORBIDE MONONITRATE [Concomitant]
  6. ASPIRIN [Concomitant]
  7. ROSIGLITAZONE [Concomitant]

REACTIONS (5)
  - BLISTER [None]
  - MALAISE [None]
  - OEDEMA PERIPHERAL [None]
  - RASH [None]
  - SKIN ULCER [None]
